FAERS Safety Report 6060572-0 (Version None)
Quarter: 2009Q1

REPORT INFORMATION
  Report Type: 
  Country: None (occurrence: None)
  Receive Date: 20090130
  Receipt Date: 20090130
  Transmission Date: 20090719
  Serious: No
  Sender: FDA-Public Use
  Company Number: None

PATIENT
  Age: 58 Year
  Sex: Male
  Weight: 99.7913 kg

DRUGS (1)
  1. SIMVASTATIN [Suspect]
     Indication: BLOOD CHOLESTEROL INCREASED
     Dosage: 1 DAY
     Dates: start: 20080501, end: 20080530

REACTIONS (3)
  - ABDOMINAL DISTENSION [None]
  - BLOOD URINE PRESENT [None]
  - DIARRHOEA [None]
